FAERS Safety Report 5710342-5 (Version None)
Quarter: 2008Q2

REPORT INFORMATION
  Report Type: 
  Country: None (occurrence: None)
  Receive Date: 20080418
  Receipt Date: 20080410
  Transmission Date: 20081010
  Serious: Yes (Life-Threatening, Hospitalization)
  Sender: FDA-Public Use
  Company Number: ES-PFIZER INC-2008031583

PATIENT
  Age: 74 Year
  Sex: Male

DRUGS (6)
  1. CARDYL [Suspect]
     Indication: HYPERLIPIDAEMIA
     Route: 048
  2. EUTIROX [Interacting]
     Indication: HYPOTHYROIDISM
     Route: 048
  3. ALDOCUMAR [Interacting]
     Indication: ATRIAL FLUTTER
     Route: 048
     Dates: start: 20070619, end: 20070810
  4. EZETROL [Concomitant]
     Indication: HYPERLIPIDAEMIA
     Route: 048
  5. DIGOXIN [Concomitant]
     Indication: ATRIAL FLUTTER
     Route: 048
  6. METFORMIN HCL [Concomitant]
     Indication: DIABETES MELLITUS
     Dosage: DAILY DOSE:850MG
     Route: 048

REACTIONS (2)
  - CEREBELLAR HAEMATOMA [None]
  - DRUG INTERACTION [None]
